FAERS Safety Report 15111564 (Version 1)
Quarter: 2018Q2

REPORT INFORMATION
  Report Type: Spontaneous
  Country: US (occurrence: US)
  Receive Date: 20180612
  Receipt Date: 20180612
  Transmission Date: 20180711
  Serious: No
  Sender: FDA-Public Use
  Company Number: None

PATIENT
  Age: 69 Year
  Sex: Female
  Weight: 48.53 kg

DRUGS (17)
  1. ESTRADIOL. [Concomitant]
     Active Substance: ESTRADIOL
  2. COPPER [Concomitant]
     Active Substance: COPPER
  3. VITAMIN D3 [Concomitant]
     Active Substance: CHOLECALCIFEROL
  4. DIGESTIVE ENZYMES [Concomitant]
     Active Substance: UNSPECIFIED INGREDIENT
  5. DGL [Concomitant]
  6. LIQUID TURMERIC [Concomitant]
  7. TRIPHALA LIQUID [Concomitant]
  8. HYDROCHLORIC ACID [Concomitant]
     Active Substance: HYDROCHLORIC ACID
  9. VIVELLE-DOT [Suspect]
     Active Substance: ESTRADIOL
     Indication: OSTEOPOROSIS
     Dosage: ?          QUANTITY:1 DF DOSAGE FORM;?
     Route: 061
     Dates: start: 200603, end: 201805
  10. VIVELLE-DOT [Suspect]
     Active Substance: ESTRADIOL
  11. ATENOLOL. [Concomitant]
     Active Substance: ATENOLOL
  12. MAGNESIUM [Concomitant]
     Active Substance: MAGNESIUM
  13. ESTRIOL [Concomitant]
     Active Substance: ESTRIOL
  14. PROGESTERONE. [Concomitant]
     Active Substance: PROGESTERONE
  15. GREEN TEA EXTRACT LIQUID [Concomitant]
  16. TRAZODONE [Concomitant]
     Active Substance: TRAZODONE HYDROCHLORIDE
  17. ZINC. [Concomitant]
     Active Substance: ZINC

REACTIONS (3)
  - Colitis [None]
  - Constipation [None]
  - Feeling abnormal [None]

NARRATIVE: CASE EVENT DATE: 201804
